FAERS Safety Report 6265093-8 (Version None)
Quarter: 2009Q3

REPORT INFORMATION
  Report Type: 
  Country: None (occurrence: None)
  Receive Date: 20090709
  Receipt Date: 20090709
  Transmission Date: 20100115
  Serious: Yes (Other)
  Sender: FDA-Public Use
  Company Number: None

PATIENT
  Age: 60 Year
  Sex: Female
  Weight: 58.9676 kg

DRUGS (1)
  1. METHYLENE BLUE DYE, AMERICAN REGENT [Suspect]
     Indication: BREAST CANCER
     Dosage: 2.5CC ONCE SUBAVEOLAR +  PEN -TUMOR
     Dates: start: 20090611

REACTIONS (2)
  - INJECTION SITE HYPERTROPHY [None]
  - INJECTION SITE PAIN [None]
